FAERS Safety Report 18947245 (Version 5)
Quarter: 2024Q3

REPORT INFORMATION
  Report Type: Report from Study
  Country: JP (occurrence: JP)
  Receive Date: 20210227
  Receipt Date: 20240910
  Transmission Date: 20241017
  Serious: Yes (Other)
  Sender: ABBVIE
  Company Number: JP-TAKEDA-2019TJP001857

PATIENT
  Age: 38 Year
  Sex: Male
  Weight: 83 kg

DRUGS (5)
  1. LEUPROLIDE ACETATE [Suspect]
     Active Substance: ISOPROPYL ALCOHOL\LEUPROLIDE ACETATE
     Indication: Bulbospinal muscular atrophy congenital
     Dosage: 11.25 MILLIGRAM, Q3MONTHS
     Route: 058
     Dates: start: 20171122, end: 20190902
  2. FEBUXOSTAT [Concomitant]
     Active Substance: FEBUXOSTAT
     Indication: Product used for unknown indication
     Dosage: 10 MILLIGRAM
     Route: 065
  3. MICARDIS [Concomitant]
     Active Substance: TELMISARTAN
     Indication: Product used for unknown indication
     Dosage: 80 MILLIGRAM
     Route: 065
  4. HALCION [Concomitant]
     Active Substance: TRIAZOLAM
     Indication: Insomnia
     Dosage: 0.25 MILLIGRAM
     Route: 065
  5. Constan [Concomitant]
     Indication: Product used for unknown indication
     Route: 065
     Dates: start: 20190402

REACTIONS (4)
  - Erectile dysfunction [Not Recovered/Not Resolved]
  - Gastritis [Recovering/Resolving]
  - Testicular atrophy [Unknown]
  - Hot flush [Unknown]

NARRATIVE: CASE EVENT DATE: 20180701
